FAERS Safety Report 7476107-1 (Version None)
Quarter: 2011Q2

REPORT INFORMATION
  Report Type: 
  Country: None (occurrence: None)
  Receive Date: 20110512
  Receipt Date: 20110509
  Transmission Date: 20111010
  Serious: Yes (Other)
  Sender: FDA-Public Use
  Company Number: GB-PFIZER INC-2011094539

PATIENT
  Age: 82 Year
  Sex: Male

DRUGS (2)
  1. LIPITOR [Suspect]
     Indication: HYPERCHOLESTEROLAEMIA
     Dosage: 10 MG, UNK
  2. LIPITOR [Suspect]
     Indication: VASCULAR GRAFT

REACTIONS (3)
  - PROSTATE CANCER [None]
  - FLATULENCE [None]
  - MUSCULAR WEAKNESS [None]
